FAERS Safety Report 5866795-5 (Version None)
Quarter: 2008Q3

REPORT INFORMATION
  Report Type: 
  Country: None (occurrence: None)
  Receive Date: 20080902
  Receipt Date: 20080825
  Transmission Date: 20090109
  Serious: Yes (Life-Threatening, Other)
  Sender: FDA-Public Use
  Company Number: FI-WYE-G02005208

PATIENT
  Sex: Male
  Weight: 11 kg

DRUGS (6)
  1. REFACTO [Suspect]
     Indication: FACTOR VIII DEFICIENCY
     Route: 042
     Dates: start: 20080625, end: 20080701
  2. REFACTO [Suspect]
     Route: 042
     Dates: start: 20080610, end: 20080611
  3. REFACTO [Suspect]
     Route: 042
     Dates: start: 20080702, end: 20080704
  4. REFACTO [Suspect]
     Route: 042
     Dates: start: 20080707, end: 20080711
  5. REFACTO [Suspect]
     Route: 042
     Dates: start: 20080714, end: 20080721
  6. REFACTO [Suspect]
     Dosage: UNSPECIFIED
     Route: 042
     Dates: start: 20080819

REACTIONS (1)
  - FACTOR VIII INHIBITION [None]
